FAERS Safety Report 12599071 (Version 1)
Quarter: 2016Q3

REPORT INFORMATION
  Report Type: Report from Study
  Country: NL (occurrence: NL)
  Receive Date: 20160727
  Receipt Date: 20160727
  Transmission Date: 20161109
  Serious: Yes (Hospitalization)
  Sender: FDA-Public Use
  Company Number: NL-AMGEN-NLDSL2016094509

PATIENT
  Age: 83 Year
  Sex: Male

DRUGS (1)
  1. ARANESP [Suspect]
     Active Substance: DARBEPOETIN ALFA
     Indication: NEPHROGENIC ANAEMIA
     Dosage: 60 MCG (200 MCG/ML, 0.3 ML), Q3WK
     Route: 058

REACTIONS (4)
  - Influenza [Unknown]
  - Pleural effusion [Unknown]
  - Adverse event [Unknown]
  - Chest pain [Unknown]

NARRATIVE: CASE EVENT DATE: 20160624
